FAERS Safety Report 24238952 (Version 2)
Quarter: 2024Q4

REPORT INFORMATION
  Report Type: Spontaneous
  Country: LB (occurrence: LB)
  Receive Date: 20240822
  Receipt Date: 20241024
  Transmission Date: 20250115
  Serious: Yes (Hospitalization)
  Sender: SANOFI AVENTIS
  Company Number: LB-SA-SAC20240819000866

PATIENT
  Age: 28 Year
  Sex: Male

DRUGS (1)
  1. THYMOGLOBULIN [Suspect]
     Active Substance: LAPINE T-LYMPHOCYTE IMMUNE GLOBULIN
     Indication: Renal transplant
     Dosage: 75 MG (3 VIALS), QD
     Route: 042
     Dates: start: 20240725, end: 20240727

REACTIONS (4)
  - Injection site phlebitis [Unknown]
  - Injection site pain [Unknown]
  - Injection site inflammation [Unknown]
  - Product preparation error [Unknown]

NARRATIVE: CASE EVENT DATE: 20240727
